FAERS Safety Report 8141262-7 (Version None)
Quarter: 2012Q1

REPORT INFORMATION
  Report Type: 
  Country: None (occurrence: None)
  Receive Date: 20120216
  Receipt Date: 20120209
  Transmission Date: 20120608
  Serious: Yes (Death)
  Sender: FDA-Public Use
  Company Number: US-ROCHE-1029299

PATIENT
  Sex: Female

DRUGS (11)
  1. DOCUSATE [Concomitant]
  2. MEGESTROL ACETATE [Concomitant]
  3. ALBUTEROL SULFATE AUTOHALER [Concomitant]
  4. DEXAMETHASONE [Concomitant]
  5. OXYCODONE HCL [Concomitant]
  6. OXYCODONE HYDROCHLORIDE [Concomitant]
  7. EVEROLIMUS [Suspect]
     Indication: PRODUCT USED FOR UNKNOWN INDICATION
     Route: 048
  8. TARCEVA [Suspect]
     Indication: PRODUCT USED FOR UNKNOWN INDICATION
     Route: 048
  9. LAPATINIB [Suspect]
     Indication: PRODUCT USED FOR UNKNOWN INDICATION
     Dates: start: 20110701, end: 20110901
  10. LEVETIRACETAM [Concomitant]
  11. XELODA [Suspect]
     Indication: PRODUCT USED FOR UNKNOWN INDICATION
     Dates: start: 20110701, end: 20110901

REACTIONS (1)
  - DEATH [None]
